FAERS Safety Report 4643342-7 (Version None)
Quarter: 2005Q2

REPORT INFORMATION
  Report Type: 
  Country: None (occurrence: None)
  Receive Date: 20050422
  Receipt Date: 20050406
  Transmission Date: 20051028
  Serious: Yes (Other)
  Sender: FDA-Public Use
  Company Number: PHBS2005US05132

PATIENT
  Age: 29 Year
  Sex: Male

DRUGS (1)
  1. VISUDYNE [Suspect]
     Indication: HAEMANGIOMA OF RETINA
     Dates: start: 20020724, end: 20020724

REACTIONS (4)
  - EYE OPERATION COMPLICATION [None]
  - MACULOPATHY [None]
  - VISUAL ACUITY REDUCED [None]
  - VITREOUS DETACHMENT [None]
